FAERS Safety Report 7929869-0 (Version None)
Quarter: 2011Q4

REPORT INFORMATION
  Report Type: 
  Country: None (occurrence: None)
  Receive Date: 20111121
  Receipt Date: 20111114
  Transmission Date: 20120403
  Serious: No
  Sender: FDA-Public Use
  Company Number: US-PFIZER INC-2011278837

PATIENT
  Sex: Female
  Weight: 57.1 kg

DRUGS (2)
  1. LEVOTHYROXINE [Concomitant]
     Indication: HORMONE REPLACEMENT THERAPY
     Dosage: 0.75 UG, 1X/DAY
  2. PREMPRO [Suspect]
     Indication: HORMONE THERAPY
     Dosage: 0.3/1.5 MG DAILY
     Route: 048
     Dates: start: 20110101, end: 20111114

REACTIONS (3)
  - MUSCLE TIGHTNESS [None]
  - PAIN IN EXTREMITY [None]
  - MUSCLE SPASMS [None]
